FAERS Safety Report 18246104 (Version 1)
Quarter: 2020Q3

REPORT INFORMATION
  Report Type: Spontaneous
  Country: IT (occurrence: IT)
  Receive Date: 20200909
  Receipt Date: 20200909
  Transmission Date: 20201103
  Serious: Yes (Hospitalization)
  Sender: FDA-Public Use
  Company Number: IT-STRIDES ARCOLAB LIMITED-2020SP010621

PATIENT
  Age: 61 Year
  Sex: Male

DRUGS (9)
  1. CLARITHROMYCIN. [Suspect]
     Active Substance: CLARITHROMYCIN
     Indication: EVIDENCE BASED TREATMENT
  2. CLARITHROMYCIN. [Suspect]
     Active Substance: CLARITHROMYCIN
     Indication: INFLUENZA
     Dosage: 500 MILLIGRAM, BID
     Route: 048
     Dates: start: 2018
  3. LEVOFLOXACIN. [Suspect]
     Active Substance: LEVOFLOXACIN
     Indication: PNEUMONIA
     Dosage: UNK
     Route: 065
  4. OSELTAMIVIR [Concomitant]
     Active Substance: OSELTAMIVIR
     Indication: INFLUENZA
     Dosage: 75 MILLIGRAM, BID
     Route: 048
     Dates: start: 2018
  5. OSELTAMIVIR [Concomitant]
     Active Substance: OSELTAMIVIR
     Indication: EVIDENCE BASED TREATMENT
  6. CEFTRIAXONE. [Suspect]
     Active Substance: CEFTRIAXONE
     Indication: PNEUMONIA
     Dosage: UNK
     Route: 065
  7. PIPERACILLIN/TAZOBACTAM [Suspect]
     Active Substance: PIPERACILLIN SODIUM\TAZOBACTAM SODIUM
     Indication: PNEUMONIA
     Dosage: UNK
     Route: 065
  8. CEFTOBIPROLE [Suspect]
     Active Substance: CEFTOBIPROLE
     Indication: INFLUENZA
     Dosage: 500 MILLIGRAM, TID
     Route: 042
     Dates: start: 2018
  9. CEFTOBIPROLE [Suspect]
     Active Substance: CEFTOBIPROLE
     Indication: EVIDENCE BASED TREATMENT

REACTIONS (9)
  - Diffuse alveolar damage [Recovered/Resolved]
  - Lung opacity [Recovered/Resolved]
  - Pain [Unknown]
  - Productive cough [Unknown]
  - Aspergillus infection [Unknown]
  - Haemoptysis [Unknown]
  - Bronchopulmonary aspergillosis [Unknown]
  - Aphonia [Unknown]
  - Pulmonary mass [Recovered/Resolved]

NARRATIVE: CASE EVENT DATE: 2018
